FAERS Safety Report 8099959-3 (Version None)
Quarter: 2012Q1

REPORT INFORMATION
  Report Type: 
  Country: None (occurrence: None)
  Receive Date: 20120129
  Receipt Date: 20111129
  Transmission Date: 20120608
  Serious: No
  Sender: FDA-Public Use
  Company Number: US-ABBOTT-11P-163-0878494-00

PATIENT
  Sex: Female
  Weight: 93.07 kg

DRUGS (10)
  1. PLAQUENIL [Concomitant]
     Indication: RHEUMATOID ARTHRITIS
  2. METFORMIN HCL [Concomitant]
     Indication: GLUCOSE TOLERANCE IMPAIRED
  3. LEVOTHYROXINE SODIUM [Concomitant]
     Indication: PRODUCT USED FOR UNKNOWN INDICATION
  4. HUMIRA [Suspect]
     Indication: PSORIASIS
  5. HUMIRA [Suspect]
     Indication: PSORIATIC ARTHROPATHY
  6. TRIAMEINOLONE CREAM 0.1% [Concomitant]
     Indication: PSORIASIS
  7. HUMIRA [Suspect]
     Indication: RHEUMATOID ARTHRITIS
     Dates: start: 20111001
  8. PEPCID [Concomitant]
     Indication: GASTROOESOPHAGEAL REFLUX DISEASE
  9. FOSAMAX [Concomitant]
     Indication: OSTEOPOROSIS
  10. CELEXA [Concomitant]
     Indication: NERVOUSNESS

REACTIONS (2)
  - ARTHRALGIA [None]
  - PRURITUS [None]
